FAERS Safety Report 15345800 (Version 1)
Quarter: 2018Q3

REPORT INFORMATION
  Report Type: Spontaneous
  Country: US (occurrence: US)
  Receive Date: 20180904
  Receipt Date: 20180904
  Transmission Date: 20181010
  Serious: No
  Sender: FDA-Public Use
  Company Number: US-GLENMARK PHARMACEUTICALS-2018GMK036567

PATIENT

DRUGS (4)
  1. BACTRIM [Concomitant]
     Active Substance: SULFAMETHOXAZOLE\TRIMETHOPRIM
     Indication: ANTIBIOTIC THERAPY
     Dosage: UNK
     Route: 065
  2. MUPIROCIN. [Suspect]
     Active Substance: MUPIROCIN
     Indication: IMPETIGO
     Dosage: 1 DF, TID
     Route: 045
     Dates: start: 20180703
  3. MUPIROCIN. [Suspect]
     Active Substance: MUPIROCIN
     Dosage: 1 DF, TID
     Route: 061
     Dates: start: 20180703
  4. LEVAQUIN [Concomitant]
     Active Substance: LEVOFLOXACIN
     Indication: ANTIBIOTIC THERAPY
     Dosage: UNK
     Route: 065

REACTIONS (6)
  - Lip blister [Not Recovered/Not Resolved]
  - Cheilitis [Not Recovered/Not Resolved]
  - Incorrect route of drug administration [Unknown]
  - Lip exfoliation [Not Recovered/Not Resolved]
  - Impetigo [Not Recovered/Not Resolved]
  - Condition aggravated [Not Recovered/Not Resolved]
